FAERS Safety Report 23211746 (Version 1)
Quarter: 2023Q4

REPORT INFORMATION
  Report Type: Spontaneous
  Country: US (occurrence: US)
  Receive Date: 20231121
  Receipt Date: 20231121
  Transmission Date: 20240110
  Serious: Yes (Other)
  Sender: FDA-Public Use
  Company Number: US-ENDO-CASE-0043001

PATIENT

DRUGS (4)
  1. PERCOCET [Suspect]
     Active Substance: ACETAMINOPHEN\OXYCODONE HYDROCHLORIDE
  2. HYDROCODONE [Suspect]
     Active Substance: HYDROCODONE
  3. OPANA [Suspect]
     Active Substance: OXYMORPHONE HYDROCHLORIDE
  4. FENTANYL [Suspect]
     Active Substance: FENTANYL\FENTANYL CITRATE

REACTIONS (1)
  - Dependence [Unknown]
